FAERS Safety Report 10530174 (Version 2)
Quarter: 2014Q4

REPORT INFORMATION
  Report Type: Spontaneous
  Country: JP (occurrence: JP)
  Receive Date: 20141021
  Receipt Date: 20141105
  Transmission Date: 20150528
  Serious: Yes (Other)
  Sender: FDA-Public Use
  Company Number: JP-ELI_LILLY_AND_COMPANY-JP201410005001

PATIENT
  Age: 83 Year
  Sex: Male

DRUGS (3)
  1. TRAMAL [Concomitant]
     Active Substance: TRAMADOL
     Dosage: UNK
  2. FORTEO [Suspect]
     Active Substance: TERIPARATIDE
     Indication: OSTEOPOROSIS
     Dosage: 20 UG, QD
     Route: 058
     Dates: start: 201406
  3. NEXIUM [Concomitant]
     Active Substance: ESOMEPRAZOLE MAGNESIUM
     Dosage: UNK

REACTIONS (2)
  - Lymphoma [Not Recovered/Not Resolved]
  - B-lymphocyte count increased [Unknown]

NARRATIVE: CASE EVENT DATE: 201408
